FAERS Safety Report 21125635 (Version 2)
Quarter: 2022Q4

REPORT INFORMATION
  Report Type: Spontaneous
  Country: US (occurrence: US)
  Receive Date: 20220725
  Receipt Date: 20221003
  Transmission Date: 20230112
  Serious: No
  Sender: FDA-Public Use
  Company Number: US-PFIZER INC-202200997872

PATIENT
  Age: 31 Year
  Sex: Male
  Weight: 63.492 kg

DRUGS (4)
  1. PAXLOVID [Suspect]
     Active Substance: NIRMATRELVIR\RITONAVIR
     Indication: COVID-19 treatment
     Dosage: [PF-07321332 300 MG]/[RITONAVIR 100 MG]; 2X/DAY
     Dates: start: 20220705, end: 20220709
  2. MELATONIN [Concomitant]
     Active Substance: MELATONIN
     Dosage: UNK [YEARS AGO]
  3. BENZONATATE [Concomitant]
     Active Substance: BENZONATATE
     Dosage: UNK [YEARS AGO]
     Dates: start: 20220705, end: 20220709
  4. ACETAMINOPHEN [Concomitant]
     Active Substance: ACETAMINOPHEN
     Dosage: UNK
     Dates: start: 20220705, end: 20220709

REACTIONS (2)
  - COVID-19 [Recovered/Resolved]
  - Disease recurrence [Recovered/Resolved]

NARRATIVE: CASE EVENT DATE: 20220717
